FAERS Safety Report 24864132 (Version 15)
Quarter: 2025Q3

REPORT INFORMATION
  Report Type: Spontaneous
  Country: SG (occurrence: SG)
  Receive Date: 20250120
  Receipt Date: 20250702
  Transmission Date: 20251021
  Serious: Yes (Life-Threatening, Hospitalization)
  Sender: SANDOZ
  Company Number: SG-002147023-NVSC2025SG007941

PATIENT
  Age: 29 Year
  Sex: Female
  Weight: 55.9 kg

DRUGS (35)
  1. PREDNISOLONE [Suspect]
     Active Substance: PREDNISOLONE
     Indication: Lupus nephritis
     Route: 065
     Dates: start: 20241224, end: 20250112
  2. PREDNISOLONE [Suspect]
     Active Substance: PREDNISOLONE
     Indication: Systemic lupus erythematosus
     Route: 065
     Dates: start: 20241128, end: 20250114
  3. PREDNISOLONE [Suspect]
     Active Substance: PREDNISOLONE
     Indication: Systemic lupus erythematosus
     Route: 065
     Dates: start: 20241220, end: 20241223
  4. PREDNISOLONE [Suspect]
     Active Substance: PREDNISOLONE
     Route: 065
     Dates: start: 20250113, end: 20250114
  5. PREDNISOLONE [Suspect]
     Active Substance: PREDNISOLONE
     Indication: Chemotherapy
     Route: 065
     Dates: start: 20250113, end: 20250114
  6. PREDNISOLONE [Suspect]
     Active Substance: PREDNISOLONE
     Indication: Lupus nephritis
     Route: 065
     Dates: start: 20241128, end: 20241219
  7. PREDNISOLONE [Suspect]
     Active Substance: PREDNISOLONE
     Route: 065
     Dates: start: 20241224, end: 20250112
  8. CALCIUM CARBONATE\VITAMIN D [Concomitant]
     Active Substance: CALCIUM CARBONATE\VITAMIN D
     Indication: Lupus nephritis
     Route: 065
     Dates: start: 20240228
  9. CALCIUM CARBONATE\VITAMIN D [Concomitant]
     Active Substance: CALCIUM CARBONATE\VITAMIN D
     Indication: Systemic lupus erythematosus
     Route: 065
     Dates: start: 20241108
  10. Calcium gluconate;Sodium chloride [Concomitant]
     Indication: Leukapheresis
     Route: 065
     Dates: start: 20241223, end: 20241223
  11. CELLCEPT [Concomitant]
     Active Substance: MYCOPHENOLATE MOFETIL
     Dosage: 2.5 G, QD
     Route: 065
  12. CELLCEPT [Concomitant]
     Active Substance: MYCOPHENOLATE MOFETIL
     Indication: Lupus nephritis
     Route: 065
     Dates: start: 20250115, end: 20250115
  13. CELLCEPT [Concomitant]
     Active Substance: MYCOPHENOLATE MOFETIL
     Indication: Systemic lupus erythematosus
     Route: 065
     Dates: start: 20250114, end: 20250114
  14. CELLCEPT [Concomitant]
     Active Substance: MYCOPHENOLATE MOFETIL
     Route: 065
     Dates: start: 20241224, end: 20250109
  15. AMOXICILLIN\CLAVULANATE POTASSIUM [Concomitant]
     Active Substance: AMOXICILLIN\CLAVULANATE POTASSIUM
     Indication: Infection prophylaxis
     Route: 065
     Dates: start: 20241224, end: 20241229
  16. CHOLECALCIFEROL [Concomitant]
     Active Substance: CHOLECALCIFEROL
     Indication: Lupus nephritis
     Route: 065
     Dates: start: 20240726, end: 20250116
  17. CHOLECALCIFEROL [Concomitant]
     Active Substance: CHOLECALCIFEROL
     Indication: Systemic lupus erythematosus
     Route: 065
     Dates: start: 20241108, end: 20250116
  18. ENALAPRIL MALEATE [Concomitant]
     Active Substance: ENALAPRIL MALEATE
     Indication: Lupus nephritis
     Route: 065
     Dates: start: 20240726, end: 20250115
  19. ENALAPRIL MALEATE [Concomitant]
     Active Substance: ENALAPRIL MALEATE
     Indication: Systemic lupus erythematosus
     Route: 065
     Dates: start: 20241108, end: 20250115
  20. FUROSEMIDE [Concomitant]
     Active Substance: FUROSEMIDE
     Indication: Systemic lupus erythematosus
     Dosage: 2.5 MG, QD
     Route: 065
  21. FUROSEMIDE [Concomitant]
     Active Substance: FUROSEMIDE
     Indication: Lupus nephritis
     Route: 065
     Dates: start: 20241212, end: 20250115
  22. HEPARIN SODIUM [Concomitant]
     Active Substance: HEPARIN SODIUM
     Indication: Leukapheresis
     Route: 065
     Dates: start: 20241223, end: 20241223
  23. HYDROXYCHLOROQUINE SULFATE [Concomitant]
     Active Substance: HYDROXYCHLOROQUINE SULFATE
     Indication: Lupus nephritis
     Route: 065
     Dates: start: 20240228, end: 20250116
  24. HYDROXYCHLOROQUINE SULFATE [Concomitant]
     Active Substance: HYDROXYCHLOROQUINE SULFATE
     Indication: Systemic lupus erythematosus
     Route: 065
     Dates: start: 20241108, end: 20250116
  25. LIDOCAINE [Concomitant]
     Active Substance: LIDOCAINE
     Indication: Therapeutic procedure
     Route: 065
     Dates: start: 20241223, end: 20241223
  26. LIDOCAINE\PRILOCAINE [Concomitant]
     Active Substance: LIDOCAINE\PRILOCAINE
     Indication: Therapeutic procedure
     Route: 065
     Dates: start: 20241223, end: 20241223
  27. OMEPRAZOLE [Concomitant]
     Active Substance: OMEPRAZOLE
     Indication: Lupus nephritis
     Route: 065
     Dates: start: 20240228, end: 20250119
  28. OMEPRAZOLE [Concomitant]
     Active Substance: OMEPRAZOLE
     Indication: Systemic lupus erythematosus
     Route: 065
     Dates: start: 20241108
  29. ACETAMINOPHEN [Concomitant]
     Active Substance: ACETAMINOPHEN
     Indication: Leukapheresis
     Route: 065
     Dates: start: 20241224, end: 20241224
  30. POTASSIUM CHLORIDE [Concomitant]
     Active Substance: POTASSIUM CHLORIDE
     Indication: Leukapheresis
     Route: 065
     Dates: start: 20241224, end: 20241224
  31. POTASSIUM CHLORIDE [Concomitant]
     Active Substance: POTASSIUM CHLORIDE
     Route: 065
     Dates: start: 20241224, end: 20241224
  32. PROGRAF [Concomitant]
     Active Substance: TACROLIMUS
     Indication: Lupus nephritis
     Dosage: 3 MG, QD, 1.5 MG, BID
     Route: 065
     Dates: start: 20240228
  33. PROGRAF [Concomitant]
     Active Substance: TACROLIMUS
     Indication: Systemic lupus erythematosus
     Route: 065
     Dates: start: 20241108
  34. PROGRAF [Concomitant]
     Active Substance: TACROLIMUS
     Route: 065
     Dates: start: 20241224, end: 20250109
  35. PROGRAF [Concomitant]
     Active Substance: TACROLIMUS
     Route: 065
     Dates: start: 20250114, end: 20250116

REACTIONS (1)
  - Systemic lupus erythematosus [Not Recovered/Not Resolved]

NARRATIVE: CASE EVENT DATE: 20250113
